FAERS Safety Report 10289567 (Version 2)
Quarter: 2014Q3

REPORT INFORMATION
  Report Type: Spontaneous
  Country: US (occurrence: None)
  Receive Date: 20140707
  Receipt Date: 20140811
  Transmission Date: 20150326
  Serious: Yes (Death, Hospitalization)
  Sender: FDA-Public Use
  Company Number: UNT-2014-002931

PATIENT
  Age: 71 Year
  Sex: Male
  Weight: 75.7 kg

DRUGS (2)
  1. REMODULIN [Suspect]
     Active Substance: TREPROSTINIL
     Indication: COR PULMONALE CHRONIC
     Route: 041
     Dates: start: 20120616
  2. SILDENAFIL (SILDENAFIL) [Concomitant]
     Active Substance: SILDENAFIL

REACTIONS (2)
  - Peripheral swelling [None]
  - Respiratory failure [None]

NARRATIVE: CASE EVENT DATE: 2014
